APPROVED DRUG PRODUCT: THIOTHIXENE
Active Ingredient: THIOTHIXENE
Strength: 1MG
Dosage Form/Route: CAPSULE;ORAL
Application: A071093 | Product #002 | TE Code: AB
Applicant: RISING PHARMA HOLDINGS INC
Approved: Jun 23, 1987 | RLD: No | RS: No | Type: RX